FAERS Safety Report 17521837 (Version 1)
Quarter: 2020Q1

REPORT INFORMATION
  Report Type: Report from Study
  Country: IT (occurrence: IT)
  Receive Date: 20200310
  Receipt Date: 20200310
  Transmission Date: 20200409
  Serious: Yes (Other)
  Sender: FDA-Public Use
  Company Number: NVSC2020IT067062

PATIENT
  Age: 52 Year
  Sex: Male

DRUGS (5)
  1. TRAMETINIB [Suspect]
     Active Substance: TRAMETINIB
     Indication: MALIGNANT MELANOMA
     Dosage: 2 OT
     Route: 065
     Dates: start: 20180206, end: 20180410
  2. CLARITROMYCINE [Concomitant]
     Active Substance: CLARITHROMYCIN
     Indication: PNEUMONIA
     Dosage: UNK
     Route: 065
     Dates: start: 20181022, end: 20181107
  3. PENICILLIN [Concomitant]
     Active Substance: PENICILLIN
     Indication: PNEUMONIA
     Dosage: UNK
     Route: 065
     Dates: start: 20181022, end: 20181107
  4. TRAMETINIB [Suspect]
     Active Substance: TRAMETINIB
     Dosage: 1.5 OT
     Route: 065
     Dates: start: 20180424, end: 201809
  5. TAFINLAR [Suspect]
     Active Substance: DABRAFENIB MESYLATE
     Indication: MALIGNANT MELANOMA
     Dosage: 300 OT
     Route: 065
     Dates: start: 20180206, end: 201809

REACTIONS (3)
  - Non-cardiac chest pain [Recovered/Resolved with Sequelae]
  - Ventricular hypokinesia [Recovered/Resolved]
  - Pyrexia [Recovered/Resolved]

NARRATIVE: CASE EVENT DATE: 20180411
